FAERS Safety Report 6198801-5 (Version None)
Quarter: 2009Q2

REPORT INFORMATION
  Report Type: 
  Country: None (occurrence: None)
  Receive Date: 20090522
  Receipt Date: 20090511
  Transmission Date: 20091009
  Serious: Yes (Other)
  Sender: FDA-Public Use
  Company Number: US-BAXTER-2009BH008259

PATIENT
  Age: 3 Month
  Sex: Male
  Weight: 3 kg

DRUGS (7)
  1. GAMMAGARD LIQUID [Suspect]
     Indication: PRIMARY IMMUNODEFICIENCY SYNDROME
     Route: 042
     Dates: start: 20090502, end: 20090502
  2. ALDACTONE [Concomitant]
     Indication: DIURETIC THERAPY
  3. LASIX [Concomitant]
     Indication: DIURETIC THERAPY
  4. ALBUTEROL [Concomitant]
  5. VIAGRA [Concomitant]
  6. AZMACORT [Concomitant]
  7. ANTIBIOTICS [Concomitant]

REACTIONS (3)
  - HYPOTENSION [None]
  - HYPOXIA [None]
  - RESPIRATORY ARREST [None]
